FAERS Safety Report 6618648-2 (Version None)
Quarter: 2010Q1

REPORT INFORMATION
  Report Type: 
  Country: None (occurrence: None)
  Receive Date: 20100305
  Receipt Date: 20100305
  Transmission Date: 20100710
  Serious: Yes (Hospitalization, Disabling)
  Sender: FDA-Public Use
  Company Number: None

PATIENT
  Age: 56 Year
  Sex: Male
  Weight: 80.7403 kg

DRUGS (2)
  1. ZOLPIDEM TARTRATE [Suspect]
     Indication: DEPRESSION
     Dosage: ONE BEDTIME
     Dates: start: 20090622, end: 20090628
  2. ZOLPIDEM TARTRATE [Suspect]
     Indication: INSOMNIA
     Dosage: ONE BEDTIME
     Dates: start: 20090622, end: 20090628

REACTIONS (5)
  - ACCIDENT [None]
  - MIDDLE INSOMNIA [None]
  - NERVE INJURY [None]
  - SCAR [None]
  - SKIN LACERATION [None]
